FAERS Safety Report 4270322-6 (Version None)
Quarter: 2004Q1

REPORT INFORMATION
  Report Type: 
  Country: None (occurrence: None)
  Receive Date: 20040113
  Receipt Date: 20040113
  Transmission Date: 20041129
  Serious: Yes (Other)
  Sender: FDA-Public Use
  Company Number: None

PATIENT
  Age: 63 Year
  Sex: Female

DRUGS (1)
  1. LEVOFLOXACIN [Suspect]
     Indication: URINARY TRACT INFECTION
     Dosage: 500 MG PO QD
     Route: 048
     Dates: start: 20030826, end: 20030902

REACTIONS (3)
  - ARTHRALGIA [None]
  - JOINT SWELLING [None]
  - TENDONITIS [None]
